FAERS Safety Report 12875077 (Version 2)
Quarter: 2016Q4

REPORT INFORMATION
  Report Type: Report from Study
  Country: PH (occurrence: PH)
  Receive Date: 20161023
  Receipt Date: 20161030
  Transmission Date: 20170207
  Serious: Yes (Death, Hospitalization)
  Sender: FDA-Public Use
  Company Number: PH-B.I. PHARMACEUTICALS,INC./RIDGEFIELD-2016-BI-41529BI

PATIENT
  Age: 59 Year
  Sex: Male
  Weight: 36.8 kg

DRUGS (7)
  1. METHOTREXATE. [Suspect]
     Active Substance: METHOTREXATE
     Dosage: FORMULATION: INJECTION; STRENGTH: 50MG
     Route: 042
     Dates: start: 20160704, end: 20160718
  2. FOLIC ACID. [Concomitant]
     Active Substance: FOLIC ACID
     Indication: VITAMIN SUPPLEMENTATION
     Dosage: ROUTE: ENTRAL
     Route: 050
     Dates: start: 20160213, end: 20160729
  3. FERROUS SULFATE. [Concomitant]
     Active Substance: FERROUS SULFATE
     Indication: VITAMIN SUPPLEMENTATION
     Dosage: ROUTE: ENTERAL
     Route: 050
     Dates: start: 20160105
  4. DRIXINE [Concomitant]
     Indication: NASAL CONGESTION
     Dosage: DAILY DOSE: PRN
     Route: 055
     Dates: start: 20160724, end: 20160729
  5. ALGESIA [Concomitant]
     Indication: ANALGESIC THERAPY
     Dosage: ROUTE: ENTERAL
     Route: 050
     Dates: start: 20160616
  6. METHOTREXATE. [Suspect]
     Active Substance: METHOTREXATE
     Indication: SQUAMOUS CELL CARCINOMA OF HEAD AND NECK
     Dosage: STRENGTH: 50 MG
     Route: 042
     Dates: start: 20160620, end: 20160620
  7. HEMOSTAN [Concomitant]
     Indication: TUMOUR HAEMORRHAGE
     Dosage: ROUTE: ENTERAL, DOSE: 4 CAPSULES AS NEEDED
     Route: 050
     Dates: start: 20160616

REACTIONS (5)
  - Dyspnoea [Recovered/Resolved]
  - Sudden cardiac death [Fatal]
  - Swelling face [Not Recovered/Not Resolved]
  - Dyspepsia [Recovered/Resolved]
  - Nasal congestion [Not Recovered/Not Resolved]

NARRATIVE: CASE EVENT DATE: 20160624
